FAERS Safety Report 25415899 (Version 1)
Quarter: 2025Q2

REPORT INFORMATION
  Report Type: Spontaneous
  Country: GB (occurrence: GB)
  Receive Date: 20250610
  Receipt Date: 20250610
  Transmission Date: 20250716
  Serious: Yes (Hospitalization, Other)
  Sender: HIKMA
  Company Number: None

PATIENT
  Sex: Female

DRUGS (1)
  1. LEVOFLOXACIN [Suspect]
     Active Substance: LEVOFLOXACIN
     Indication: Product used for unknown indication
     Dosage: 500 MG EVERY 12 HOURS
     Route: 065

REACTIONS (9)
  - Dyspnoea [Recovered/Resolved]
  - Bronchoscopy [Recovered/Resolved]
  - Anxiety [Recovering/Resolving]
  - Bronchospasm [Recovering/Resolving]
  - Hypoxia [Recovering/Resolving]
  - Confusional state [Recovering/Resolving]
  - Wheezing [Recovering/Resolving]
  - Oxygen saturation decreased [Recovering/Resolving]
  - Panic attack [Recovering/Resolving]
